FAERS Safety Report 23284577 (Version 1)
Quarter: 2023Q4

REPORT INFORMATION
  Report Type: Spontaneous
  Country: US (occurrence: US)
  Receive Date: 20231211
  Receipt Date: 20231211
  Transmission Date: 20240109
  Serious: No
  Sender: FDA-Public Use
  Company Number: US-TAKEDA-2023TUS118941

PATIENT
  Sex: Female
  Weight: 67 kg

DRUGS (1)
  1. LIVTENCITY [Suspect]
     Active Substance: MARIBAVIR
     Indication: Cytomegalovirus infection
     Dosage: 2 DOSAGE FORM, BID
     Route: 065
     Dates: start: 20231203

REACTIONS (3)
  - Abdominal pain upper [Unknown]
  - Taste disorder [Unknown]
  - Nausea [Unknown]
